FAERS Safety Report 5332641-1 (Version None)
Quarter: 2007Q2

REPORT INFORMATION
  Report Type: 
  Country: None (occurrence: None)
  Receive Date: 20070523
  Receipt Date: 20070514
  Transmission Date: 20071010
  Serious: Yes (Hospitalization, Other)
  Sender: FDA-Public Use
  Company Number: US-PFIZER INC-2007040045

PATIENT
  Sex: Female
  Weight: 59 kg

DRUGS (6)
  1. NEURONTIN [Suspect]
     Indication: NEURALGIA
     Dates: start: 20040101, end: 20070425
  2. LYRICA [Suspect]
     Indication: NEURALGIA
     Dates: start: 20070424, end: 20070425
  3. LORTAB [Concomitant]
  4. ZETIA [Concomitant]
  5. PRAVACHOL [Concomitant]
  6. PRAVASTATIN [Concomitant]

REACTIONS (5)
  - BLOOD CHOLESTEROL INCREASED [None]
  - CONVULSION [None]
  - HEADACHE [None]
  - VISION BLURRED [None]
  - VISUAL ACUITY REDUCED [None]
